FAERS Safety Report 8778068 (Version 1)
Quarter: 2012Q4

REPORT INFORMATION
  Report Type: 
  Country: US (occurrence: US)
  Receive Date: 20120911
  Receipt Date: 20120911
  Transmission Date: 20130627
  Serious: Yes (Other)
  Sender: FDA-Public Use
  Company Number: US-PFIZER INC-2012219422

PATIENT
  Age: 90 Year
  Sex: Male
  Weight: 76.19 kg

DRUGS (2)
  1. REVATIO [Suspect]
     Indication: DYSPNOEA
     Dosage: 20 mg, 3x/day
     Route: 048
  2. TOPROL XL [Concomitant]
     Indication: CARDIAC DISORDER
     Dosage: UNK

REACTIONS (6)
  - Dyspnoea [Recovering/Resolving]
  - Gait disturbance [Recovering/Resolving]
  - Limb injury [Recovering/Resolving]
  - Joint injury [Recovering/Resolving]
  - Malaise [Recovering/Resolving]
  - Fall [Recovering/Resolving]
